FAERS Safety Report 20990613 (Version 2)
Quarter: 2022Q2

REPORT INFORMATION
  Report Type: Other
  Country: QA (occurrence: None)
  Receive Date: 20220622
  Receipt Date: 20220624
  Transmission Date: 20220721
  Serious: No
  Sender: FDA-Public Use
  Company Number: QA-ROCHE-3121284

PATIENT
  Age: 50 Year
  Sex: Female
  Weight: 76.5 kg

DRUGS (9)
  1. OCRELIZUMAB [Suspect]
     Active Substance: OCRELIZUMAB
     Indication: Relapsing-remitting multiple sclerosis
     Route: 042
     Dates: start: 20210530
  2. LEVOCETIRIZINE [Concomitant]
     Active Substance: LEVOCETIRIZINE
  3. ROSUVASTATIN [Concomitant]
     Active Substance: ROSUVASTATIN
     Route: 048
     Dates: start: 20211009
  4. RABEPRAZOLE [Concomitant]
     Active Substance: RABEPRAZOLE
  5. CETIRIZINE [Concomitant]
     Active Substance: CETIRIZINE HYDROCHLORIDE
     Dosage: 5MG/120MG
     Route: 048
     Dates: start: 20220620
  6. OSELTAMIVIR [Concomitant]
     Active Substance: OSELTAMIVIR
     Route: 048
     Dates: start: 20220620
  7. PREDNISOLONE [Concomitant]
     Active Substance: PREDNISOLONE
     Route: 048
     Dates: start: 20220620
  8. XYLOMETAZOLINE [Concomitant]
     Active Substance: XYLOMETAZOLINE
     Route: 050
     Dates: start: 20220620
  9. CALCIPOTRIENE [Concomitant]
     Active Substance: CALCIPOTRIENE
     Dosage: DOSE: APP %
     Route: 061
     Dates: start: 20220617

REACTIONS (1)
  - Influenza A virus test positive [Not Recovered/Not Resolved]

NARRATIVE: CASE EVENT DATE: 20220619
